FAERS Safety Report 25461380 (Version 1)
Quarter: 2025Q2

REPORT INFORMATION
  Report Type: Spontaneous
  Country: FR (occurrence: FR)
  Receive Date: 20250620
  Receipt Date: 20250620
  Transmission Date: 20250717
  Serious: Yes (Death, Other)
  Sender: AUROBINDO
  Company Number: FR-AFSSAPS-AM2025000439

PATIENT
  Age: 77 Year
  Sex: Male
  Weight: 101 kg

DRUGS (15)
  1. DOCETAXEL [Suspect]
     Active Substance: DOCETAXEL
     Indication: Lung neoplasm malignant
     Route: 042
     Dates: start: 20230131, end: 20230131
  2. HERCEPTIN [Suspect]
     Active Substance: TRASTUZUMAB
     Indication: Lung neoplasm malignant
     Route: 042
     Dates: start: 20230131, end: 20230131
  3. PERJETA [Suspect]
     Active Substance: PERTUZUMAB
     Indication: Lung neoplasm malignant
     Route: 042
     Dates: start: 20230131, end: 20230131
  4. FOLIC ACID [Concomitant]
     Active Substance: FOLIC ACID
     Indication: Product used for unknown indication
     Route: 065
  5. BISOPROLOL [Concomitant]
     Active Substance: BISOPROLOL
     Indication: Product used for unknown indication
     Route: 065
  6. EMPAGLIFLOZIN [Concomitant]
     Active Substance: EMPAGLIFLOZIN
     Indication: Product used for unknown indication
     Route: 065
  7. FEBUXOSTAT [Concomitant]
     Active Substance: FEBUXOSTAT
     Indication: Product used for unknown indication
     Route: 065
  8. FUROSEMIDE [Concomitant]
     Active Substance: FUROSEMIDE
     Indication: Product used for unknown indication
     Route: 065
  9. LORMETAZEPAM [Concomitant]
     Active Substance: LORMETAZEPAM
     Indication: Product used for unknown indication
     Route: 065
  10. PANTOPRAZOLE [Concomitant]
     Active Substance: PANTOPRAZOLE
     Indication: Product used for unknown indication
     Route: 065
  11. RAMIPRIL [Concomitant]
     Active Substance: RAMIPRIL
     Indication: Product used for unknown indication
     Route: 065
  12. LIPTRUZET [Concomitant]
     Active Substance: ATORVASTATIN CALCIUM\EZETIMIBE
     Indication: Product used for unknown indication
     Route: 065
  13. SPIRONOLACTONE [Concomitant]
     Active Substance: SPIRONOLACTONE
     Indication: Product used for unknown indication
     Route: 065
  14. TRULICITY [Concomitant]
     Active Substance: DULAGLUTIDE
     Indication: Product used for unknown indication
     Route: 065
  15. INNOHEP [Concomitant]
     Active Substance: TINZAPARIN SODIUM
     Indication: Product used for unknown indication
     Route: 065

REACTIONS (2)
  - Febrile bone marrow aplasia [Fatal]
  - Septic shock [Fatal]

NARRATIVE: CASE EVENT DATE: 20230206
